FAERS Safety Report 24356961 (Version 1)
Quarter: 2024Q3

REPORT INFORMATION
  Report Type: Report from Study
  Country: CN (occurrence: CN)
  Receive Date: 20240924
  Receipt Date: 20240924
  Transmission Date: 20241016
  Serious: Yes (Hospitalization)
  Sender: ABBVIE
  Company Number: CN-IMMUNOGEN, INC.-CN-IMGN-24-00628

PATIENT
  Age: 55 Year
  Sex: Female
  Weight: 47.5 kg

DRUGS (5)
  1. ELAHERE [Suspect]
     Active Substance: MIRVETUXIMAB SORAVTANSINE-GYNX
     Indication: Ovarian cancer
     Route: 040
     Dates: start: 20240126, end: 20240506
  2. SODIUM HYALURONATE [Concomitant]
     Active Substance: HYALURONATE SODIUM
     Indication: Eye disorder prophylaxis
     Route: 047
     Dates: start: 20240505, end: 20240509
  3. SODIUM HYALURONATE [Concomitant]
     Active Substance: HYALURONATE SODIUM
     Indication: Eye disorder prophylaxis
     Route: 047
     Dates: start: 20240510, end: 20240513
  4. FLUOROMETHOLONE [Concomitant]
     Active Substance: FLUOROMETHOLONE
     Indication: Eye disorder prophylaxis
     Dosage: TIME INTERVAL: 0.33333333 DAYS
     Route: 047
     Dates: start: 20240505, end: 20240509
  5. FLUOROMETHOLONE [Concomitant]
     Active Substance: FLUOROMETHOLONE
     Indication: Eye disorder prophylaxis
     Route: 047
     Dates: start: 20240510, end: 20240608

REACTIONS (1)
  - Small intestinal obstruction [Not Recovered/Not Resolved]

NARRATIVE: CASE EVENT DATE: 20240603
